FAERS Safety Report 7013442-5 (Version None)
Quarter: 2010Q3

REPORT INFORMATION
  Report Type: 
  Country: None (occurrence: None)
  Receive Date: 20100924
  Receipt Date: 20100901
  Transmission Date: 20110219
  Serious: No
  Sender: FDA-Public Use
  Company Number: US-PFIZER INC-2010110810

PATIENT
  Age: 9 Year
  Sex: Male

DRUGS (2)
  1. ZARONTIN [Suspect]
     Indication: PETIT MAL EPILEPSY
     Dosage: UNK (2 OR 3 MG)
     Route: 048
     Dates: start: 20070101
  2. ZARONTIN [Suspect]
     Dosage: 5 MG, UNK
     Route: 048

REACTIONS (1)
  - BACK PAIN [None]
